FAERS Safety Report 9190743 (Version 1)
Quarter: 2013Q1

REPORT INFORMATION
  Report Type: Spontaneous
  Country: CN (occurrence: CN)
  Receive Date: 20130326
  Receipt Date: 20130326
  Transmission Date: 20140127
  Serious: Yes (Death)
  Sender: FDA-Public Use
  Company Number: CN-JNJFOC-20130312802

PATIENT
  Age: 55 Year
  Sex: Male

DRUGS (4)
  1. DOXORUBICIN [Suspect]
     Indication: PLASMABLASTIC LYMPHOMA
     Route: 042
  2. CYCLOPHOSPHAMIDE [Suspect]
     Indication: PLASMABLASTIC LYMPHOMA
     Route: 065
  3. VINCRISTINE [Suspect]
     Indication: PLASMABLASTIC LYMPHOMA
     Route: 065
  4. PREDNISONE [Suspect]
     Indication: PLASMABLASTIC LYMPHOMA
     Route: 065

REACTIONS (2)
  - Multi-organ failure [Fatal]
  - Plasmablastic lymphoma [Fatal]
